FAERS Safety Report 6881089-7 (Version None)
Quarter: 2010Q3

REPORT INFORMATION
  Report Type: 
  Country: None (occurrence: None)
  Receive Date: 20100727
  Receipt Date: 20100424
  Transmission Date: 20110219
  Serious: No
  Sender: FDA-Public Use
  Company Number: US-BIOGENIDEC-2010BI013564

PATIENT
  Age: 58 Year
  Sex: Male

DRUGS (3)
  1. AVONEX [Suspect]
     Indication: MULTIPLE SCLEROSIS
     Dates: start: 20100413
  2. AVONEX [Suspect]
     Dates: start: 20100420
  3. ADVIL LIQUI-GELS [Concomitant]

REACTIONS (5)
  - APHAGIA [None]
  - ARTHRALGIA [None]
  - FEELING JITTERY [None]
  - INFLUENZA LIKE ILLNESS [None]
  - VOMITING [None]
